FAERS Safety Report 8834775 (Version 2)
Quarter: 2012Q4

REPORT INFORMATION
  Report Type: Spontaneous
  Country: IN (occurrence: None)
  Receive Date: 20121009
  Receipt Date: 20121127
  Transmission Date: 20130627
  Serious: Yes (Hospitalization, Other)
  Sender: FDA-Public Use
  Company Number: AUR-APL-2012-04211

PATIENT
  Age: 28 Year
  Sex: Female

DRUGS (2)
  1. MIRTAZAPINE [Suspect]
     Indication: DEPRESSION
  2. MIRTAZAPINE [Suspect]
     Indication: DEPRESSION

REACTIONS (4)
  - Thrombocytopenia [None]
  - Systemic lupus erythematosus [None]
  - Condition aggravated [None]
  - Stevens-Johnson syndrome [None]
